FAERS Safety Report 5053754-8 (Version None)
Quarter: 2006Q3

REPORT INFORMATION
  Report Type: 
  Country: None (occurrence: None)
  Receive Date: 20060712
  Receipt Date: 20060629
  Transmission Date: 20061208
  Serious: Yes (Hospitalization, Disabling)
  Sender: FDA-Public Use
  Company Number: 2006056673

PATIENT
  Age: 71 Year
  Sex: 0

DRUGS (1)
  1. LIPITOR [Suspect]
     Indication: HYPERLIPIDAEMIA
     Dosage: 10 MG (1 IN 1 D), ORAL
     Route: 048
     Dates: start: 20060324, end: 20060424

REACTIONS (2)
  - DYSKINESIA [None]
  - TREMOR [None]
